FAERS Safety Report 19098178 (Version 1)
Quarter: 2021Q2

REPORT INFORMATION
  Report Type: Other
  Country: CH (occurrence: CH)
  Receive Date: 20210406
  Receipt Date: 20210406
  Transmission Date: 20210717
  Serious: Yes (Other)
  Sender: FDA-Public Use
  Company Number: CH-ROCHE-2803581

PATIENT
  Sex: Male

DRUGS (8)
  1. RANIBIZUMAB. [Suspect]
     Active Substance: RANIBIZUMAB
     Indication: DIABETIC RETINAL OEDEMA
     Dosage: 0.5 MG; PRE?FILLED SYRINGE (IN RIGHT EYE)
     Route: 050
     Dates: start: 20181025
  2. RANIBIZUMAB. [Suspect]
     Active Substance: RANIBIZUMAB
     Dosage: 0.5 MG; PRE?FILLED SYRINGE (IN THE RIGHT EYE)
     Route: 050
     Dates: start: 20200319
  3. RANIBIZUMAB. [Suspect]
     Active Substance: RANIBIZUMAB
     Dosage: 0.5 MG; PRE?FILLED SYRINGE (IN THE RIGHT EYE)
     Route: 050
     Dates: start: 20181220
  4. RANIBIZUMAB. [Suspect]
     Active Substance: RANIBIZUMAB
     Dosage: 0.5 MG; PRE?FILLED SYRINGE (IN THE RIGHT EYE)
     Route: 050
     Dates: start: 20200429
  5. RANIBIZUMAB. [Suspect]
     Active Substance: RANIBIZUMAB
     Dosage: 0.5 MG; PRE?FILLED SYRINGE (IN THE RIGHT EYE)
     Route: 050
     Dates: start: 20200123
  6. RANIBIZUMAB. [Suspect]
     Active Substance: RANIBIZUMAB
     Dosage: 0.5 MG; PRE?FILLED SYRINGE (IN THE RIGHT EYE)
     Route: 050
     Dates: start: 20200220
  7. RANIBIZUMAB. [Suspect]
     Active Substance: RANIBIZUMAB
     Dosage: 0.5 MG; PRE?FILLED SYRINGE (IN THE RIGHT EYE)
     Route: 050
     Dates: start: 20200527
  8. RANIBIZUMAB. [Suspect]
     Active Substance: RANIBIZUMAB
     Indication: VISUAL IMPAIRMENT
     Dosage: 0.5 MG; PRE?FILLED SYRINGE (IN RIGHT EYE)
     Route: 050
     Dates: start: 20181122

REACTIONS (1)
  - Cataract [Recovered/Resolved]

NARRATIVE: CASE EVENT DATE: 20200702
